FAERS Safety Report 8110608-8 (Version None)
Quarter: 2012Q1

REPORT INFORMATION
  Report Type: 
  Country: None (occurrence: None)
  Receive Date: 20120203
  Receipt Date: 20120130
  Transmission Date: 20120608
  Serious: Yes (Other)
  Sender: FDA-Public Use
  Company Number: US-PFIZER INC-2012025653

PATIENT
  Sex: Female
  Weight: 58.05 kg

DRUGS (9)
  1. TRAMADOL HCL [Suspect]
     Indication: HEADACHE
     Dosage: UNK
  2. METHYLPREDNISOLONE [Concomitant]
     Indication: MYALGIA
     Dosage: 4 MG, DAILY
  3. VITAMIN D [Concomitant]
     Dosage: UNK
  4. LYRICA [Suspect]
     Indication: FIBROMYALGIA
  5. LYRICA [Suspect]
     Indication: NEURALGIA
     Dosage: UNK
     Route: 048
     Dates: start: 20100601, end: 20100601
  6. ACETAMINOPHEN [Suspect]
     Indication: HEADACHE
     Dosage: UNK
  7. VALIUM [Suspect]
     Indication: HEADACHE
     Dosage: UNK
  8. LYRICA [Suspect]
     Indication: MYALGIA
  9. IBUPROFEN [Suspect]
     Indication: HEADACHE
     Dosage: UNK

REACTIONS (2)
  - HEADACHE [None]
  - DRUG INEFFECTIVE [None]
